FAERS Safety Report 10678296 (Version 1)
Quarter: 2014Q4

REPORT INFORMATION
  Report Type: Spontaneous
  Country: GB (occurrence: GB)
  Receive Date: 20141229
  Receipt Date: 20141229
  Transmission Date: 20150529
  Serious: Yes (Other)
  Sender: FDA-Public Use
  Company Number: GB-MYLANLABS-2014M1015484

PATIENT

DRUGS (3)
  1. PROPOFOL. [Suspect]
     Active Substance: PROPOFOL
     Indication: INDUCTION OF ANAESTHESIA
     Dosage: 140MG
     Route: 065
  2. ATRACURIUM BESILATE [Concomitant]
     Active Substance: ATRACURIUM BESYLATE
     Indication: ENDOTRACHEAL INTUBATION
     Dosage: 8 MG
     Route: 065
  3. REMIFENTANIL [Suspect]
     Active Substance: REMIFENTANIL
     Indication: INDUCTION OF ANAESTHESIA
     Dosage: 0.2 MICROG/KG/MIN

REACTIONS (1)
  - Torticollis [Recovered/Resolved]
